FAERS Safety Report 6248222-1 (Version None)
Quarter: 2009Q2

REPORT INFORMATION
  Report Type: 
  Country: None (occurrence: None)
  Receive Date: 20090624
  Receipt Date: 20090609
  Transmission Date: 20091009
  Serious: Yes (Other)
  Sender: FDA-Public Use
  Company Number: 2008US003508

PATIENT
  Age: 66 Year
  Sex: Male
  Weight: 104.3 kg

DRUGS (7)
  1. PROTOPIC [Suspect]
     Indication: DERMATITIS
     Dosage: 0.1 %, TOPICAL; BID, TOPICAL
     Route: 061
     Dates: start: 20040415, end: 20051110
  2. PROTOPIC [Suspect]
     Indication: DERMATITIS
     Dosage: 0.1 %, TOPICAL; BID, TOPICAL
     Route: 061
     Dates: start: 20031210
  3. ELIDEL [Suspect]
     Indication: DERMATITIS
     Dosage: 0.1 %, BID, TOPICAL
     Route: 061
     Dates: start: 20040415, end: 20051011
  4. ELIDEL [Suspect]
     Indication: DERMATITIS
     Dosage: 0.1 %, BID, TOPICAL
     Route: 061
     Dates: start: 20051021
  5. LITHIUM CARBONATE [Concomitant]
  6. HYDROCODONE (HYDROCODONE) [Concomitant]
  7. THYROID THERAPY [Concomitant]

REACTIONS (16)
  - ALVEOLITIS [None]
  - ANAEMIA [None]
  - BONE MARROW FAILURE [None]
  - BRONCHIOLOALVEOLAR CARCINOMA [None]
  - DISEASE RECURRENCE [None]
  - EARLY SATIETY [None]
  - EXTRANODAL MARGINAL ZONE B-CELL LYMPHOMA (MALT TYPE) [None]
  - FEBRILE NEUTROPENIA [None]
  - GASTRITIS EROSIVE [None]
  - GASTROENTERITIS [None]
  - HAEMATOCHEZIA [None]
  - HIATUS HERNIA [None]
  - METAPLASIA [None]
  - NON-HODGKIN'S LYMPHOMA [None]
  - OEDEMA PERIPHERAL [None]
  - WEIGHT DECREASED [None]
